FAERS Safety Report 12524308 (Version 1)
Quarter: 2016Q3

REPORT INFORMATION
  Report Type: Report from Study
  Country: US (occurrence: US)
  Receive Date: 20160704
  Receipt Date: 20160704
  Transmission Date: 20161109
  Serious: Yes (Hospitalization)
  Sender: FDA-Public Use
  Company Number: US-GLENMARK PHARMACEUTICALS INC, USA.-2016GMK023474

PATIENT
  Age: 21 Year
  Sex: Female

DRUGS (3)
  1. BLINDED PLACEBO PH 3.7 [Suspect]
     Active Substance: INVESTIGATIONAL PRODUCT
     Indication: RHINITIS PERENNIAL
     Dosage: UNK
     Route: 065
  2. BLINDED PLACEBO PH 7.0 [Suspect]
     Active Substance: INVESTIGATIONAL PRODUCT
     Indication: RHINITIS PERENNIAL
     Dosage: UNK
     Route: 065
  3. BLINDED MOMETASONE FUROATE/OLOPATADINE HYDROCHLORIDE [Suspect]
     Active Substance: MOMETASONE FUROATE\OLOPATADINE HYDROCHLORIDE
     Indication: RHINITIS PERENNIAL
     Dosage: UNK
     Route: 065

REACTIONS (1)
  - Ovarian cyst ruptured [Recovered/Resolved]

NARRATIVE: CASE EVENT DATE: 20160620
